FAERS Safety Report 5582801-X (Version None)
Quarter: 2007Q4

REPORT INFORMATION
  Report Type: 
  Country: None (occurrence: None)
  Receive Date: 20071231
  Receipt Date: 20071217
  Transmission Date: 20080405
  Serious: Yes (Life-Threatening, Hospitalization, Disabling, Other)
  Sender: FDA-Public Use
  Company Number: 2007PV000038

PATIENT
  Sex: Male
  Weight: 70 kg

DRUGS (5)
  1. DEPOCYT [Suspect]
     Indication: LYMPHOMA
     Dosage: 50 MG;QD;INTH
     Route: 037
     Dates: start: 20070608, end: 20070629
  2. DAUNORUBICIN HCL [Concomitant]
  3. ONCASPAR [Concomitant]
  4. CYCLOPHOSPHAMIDE [Concomitant]
  5. CYTOSINE ARABINOSIDE [Concomitant]

REACTIONS (6)
  - CIRCULATORY COLLAPSE [None]
  - HYPOTONIA [None]
  - NEUROTOXICITY [None]
  - PARESIS [None]
  - QUADRIPLEGIA [None]
  - SPINAL SHOCK [None]
